FAERS Safety Report 15125825 (Version 1)
Quarter: 2018Q3

REPORT INFORMATION
  Report Type: Spontaneous
  Country: US (occurrence: US)
  Receive Date: 20180710
  Receipt Date: 20180710
  Transmission Date: 20181010
  Serious: No
  Sender: FDA-Public Use
  Company Number: US-UPSHER-SMITH LABORATORIES, LLC-2017USL00251

PATIENT
  Age: 69 Year
  Sex: Male
  Weight: 97.51 kg

DRUGS (1)
  1. TESTOSTERONE. [Suspect]
     Active Substance: TESTOSTERONE
     Indication: ANDROGEN DEFICIENCY
     Dosage: 50 MG, 1X/DAY
     Route: 061
     Dates: start: 20170919

REACTIONS (3)
  - Semen volume decreased [Not Recovered/Not Resolved]
  - Product administered at inappropriate site [Recovered/Resolved]
  - Drug effect incomplete [Not Recovered/Not Resolved]

NARRATIVE: CASE EVENT DATE: 20170919
